FAERS Safety Report 11401820 (Version 2)
Quarter: 2015Q4

REPORT INFORMATION
  Report Type: Report from Study
  Country: US (occurrence: US)
  Receive Date: 20150821
  Receipt Date: 20151215
  Transmission Date: 20160304
  Serious: Yes (Hospitalization, Other)
  Sender: FDA-Public Use
  Company Number: US-AMGEN-USASL2015085176

PATIENT
  Age: 72 Year
  Sex: Male

DRUGS (1)
  1. ENBREL [Suspect]
     Active Substance: ETANERCEPT
     Indication: RHEUMATOID ARTHRITIS
     Dosage: 50 MG, UNK
     Route: 065
     Dates: end: 2015

REACTIONS (11)
  - Peripheral artery bypass [Unknown]
  - Post procedural infection [Unknown]
  - Aortic aneurysm [Unknown]
  - Diabetes mellitus [Unknown]
  - Renal failure [Unknown]
  - Urinary tract infection [Unknown]
  - Graft infection [Unknown]
  - Immune system disorder [Unknown]
  - Urinary retention [Unknown]
  - Kidney infection [Unknown]
  - Sepsis [Unknown]

NARRATIVE: CASE EVENT DATE: 2013
